FAERS Safety Report 18840526 (Version 1)
Quarter: 2021Q1

REPORT INFORMATION
  Report Type: Spontaneous
  Country: GB (occurrence: GB)
  Receive Date: 20210204
  Receipt Date: 20210204
  Transmission Date: 20210419
  Serious: Yes (Death, Hospitalization, Other)
  Sender: FDA-Public Use
  Company Number: GB-SA-2021SA032127

PATIENT
  Sex: Female

DRUGS (1)
  1. CAPLACIZUMAB [Suspect]
     Active Substance: CAPLACIZUMAB
     Route: 065
     Dates: start: 20210113

REACTIONS (7)
  - Thrombocytopenia [Fatal]
  - Pulmonary embolism [Fatal]
  - Cardiac disorder [Fatal]
  - COVID-19 pneumonia [Fatal]
  - Pulmonary haemorrhage [Fatal]
  - Nervous system disorder [Fatal]
  - Renal disorder [Fatal]

NARRATIVE: CASE EVENT DATE: 202101
